FAERS Safety Report 7809639-4 (Version None)
Quarter: 2011Q4

REPORT INFORMATION
  Report Type: 
  Country: None (occurrence: None)
  Receive Date: 20111012
  Receipt Date: 20111005
  Transmission Date: 20120403
  Serious: Yes (Other)
  Sender: FDA-Public Use
  Company Number: DE-UCBSA-042911

PATIENT
  Sex: Male

DRUGS (2)
  1. VIMPAT [Suspect]
     Dates: start: 20110101
  2. KEPPRA [Suspect]

REACTIONS (1)
  - RENAL IMPAIRMENT [None]
